FAERS Safety Report 4935034-1 (Version None)
Quarter: 2006Q1

REPORT INFORMATION
  Report Type: 
  Country: None (occurrence: None)
  Receive Date: 20060302
  Receipt Date: 20060216
  Transmission Date: 20060701
  Serious: Yes (Hospitalization, Other)
  Sender: FDA-Public Use
  Company Number: US200602003623

PATIENT
  Age: 73 Year
  Sex: Female

DRUGS (6)
  1. FORTEO [Suspect]
     Indication: OSTEOPOROSIS
     Dates: start: 20040201
  2. FORTEO [Concomitant]
  3. FORTEO [Concomitant]
  4. SIMVASTATIN [Concomitant]
  5. ACTONEL /USA/ (RISEDRONATE SODIUM) [Concomitant]
  6. DILANTIN [Concomitant]

REACTIONS (5)
  - CEREBRAL HAEMORRHAGE [None]
  - FALL [None]
  - HEAD INJURY [None]
  - LIMB DISCOMFORT [None]
  - PHARMACEUTICAL PRODUCT COMPLAINT [None]
